FAERS Safety Report 6139302-X (Version None)
Quarter: 2009Q2

REPORT INFORMATION
  Report Type: 
  Country: None (occurrence: None)
  Receive Date: 20090401
  Receipt Date: 20090324
  Transmission Date: 20091009
  Serious: Yes (Hospitalization)
  Sender: FDA-Public Use
  Company Number: BR-ASTRAZENECA-2009UW07644

PATIENT
  Age: 63 Year
  Sex: Male

DRUGS (5)
  1. ATENOLOL [Suspect]
     Indication: DRESSLER'S SYNDROME
     Route: 048
     Dates: start: 20090225
  2. CRESTOR [Suspect]
     Indication: HYPERCHOLESTEROLAEMIA
     Route: 048
     Dates: start: 20090225, end: 20090313
  3. CLOPIDOGREL [Concomitant]
     Indication: PLATELET AGGREGATION
  4. ASPIRIN [Concomitant]
     Indication: PLATELET AGGREGATION
  5. ENALAPRIL [Concomitant]
     Indication: DRESSLER'S SYNDROME
     Route: 048
     Dates: start: 20090225

REACTIONS (1)
  - PANCREATITIS [None]
